FAERS Safety Report 19232615 (Version 1)
Quarter: 2021Q2

REPORT INFORMATION
  Report Type: Other
  Country: IN (occurrence: IN)
  Receive Date: 20210507
  Receipt Date: 20210507
  Transmission Date: 20210717
  Serious: Yes (Hospitalization, Other)
  Sender: FDA-Public Use
  Company Number: IN-INNOGENIX, LLC-2110306

PATIENT
  Age: 21 Year
  Sex: Male

DRUGS (4)
  1. METRONIDAZOLE. [Suspect]
     Active Substance: METRONIDAZOLE
     Indication: PRODUCT USED FOR UNKNOWN INDICATION
     Route: 042
  2. RANITIDINE. [Suspect]
     Active Substance: RANITIDINE
     Route: 042
  3. DICYCLOMINE [Concomitant]
     Active Substance: DICYCLOMINE HYDROCHLORIDE
     Route: 065
  4. PHENYTOIN. [Suspect]
     Active Substance: PHENYTOIN
     Route: 042

REACTIONS (8)
  - Vomiting [Unknown]
  - Headache [Unknown]
  - Disorientation [Unknown]
  - Drug interaction [Unknown]
  - Toxicity to various agents [Unknown]
  - Abdominal pain [Unknown]
  - Nausea [Unknown]
  - Seizure [Unknown]
